FAERS Safety Report 25549005 (Version 2)
Quarter: 2025Q3

REPORT INFORMATION
  Report Type: Spontaneous
  Country: US (occurrence: US)
  Receive Date: 20250714
  Receipt Date: 20250812
  Transmission Date: 20251021
  Serious: No
  Sender: Kenvue
  Company Number: US-KENVUE-20250700427

PATIENT
  Sex: Female

DRUGS (1)
  1. MOTRIN INFANTS [Suspect]
     Active Substance: IBUPROFEN
     Indication: Product used for unknown indication
     Route: 048

REACTIONS (5)
  - Throat irritation [Unknown]
  - Product administered to patient of inappropriate age [Unknown]
  - Product use in unapproved indication [Unknown]
  - Product taste abnormal [Unknown]
  - Poor quality product administered [Unknown]
